FAERS Safety Report 14545232 (Version 2)
Quarter: 2018Q2

REPORT INFORMATION
  Report Type: Spontaneous
  Country: FR (occurrence: FR)
  Receive Date: 20180218
  Receipt Date: 20180615
  Transmission Date: 20180711
  Serious: Yes (Hospitalization)
  Sender: FDA-Public Use
  Company Number: FR-TEVA-2018-FR-856980

PATIENT
  Age: 57 Year
  Sex: Male
  Weight: 70 kg

DRUGS (4)
  1. BRILIQUE 90 MG COMPRIME PELLICULE [Suspect]
     Active Substance: TICAGRELOR
     Indication: ACUTE CORONARY SYNDROME
     Dosage: 180 MILLIGRAM DAILY;
     Route: 048
     Dates: start: 20170919, end: 20171007
  2. BRILIQUE 90 MG COMPRIME PELLICULE [Suspect]
     Active Substance: TICAGRELOR
     Dosage: 180 MILLIGRAM DAILY;
     Route: 048
     Dates: start: 20170919, end: 20170921
  3. ZEBETA [Suspect]
     Active Substance: BISOPROLOL FUMARATE
     Indication: ACUTE CORONARY SYNDROME
     Dosage: 1.25 MILLIGRAM DAILY;
     Route: 048
     Dates: start: 20170919
  4. ZEBETA [Suspect]
     Active Substance: BISOPROLOL FUMARATE
     Dosage: 1.25 MG TO 2.5 MG / DAY
     Route: 048
     Dates: start: 20170928, end: 20170928

REACTIONS (1)
  - Sinoatrial block [Recovered/Resolved]

NARRATIVE: CASE EVENT DATE: 20170930
